FAERS Safety Report 4680948-3 (Version None)
Quarter: 2005Q2

REPORT INFORMATION
  Report Type: 
  Country: None (occurrence: None)
  Receive Date: 20050601
  Receipt Date: 20050601
  Transmission Date: 20051028
  Serious: No
  Sender: FDA-Public Use
  Company Number: None

PATIENT
  Sex: Female
  Weight: 70 kg

DRUGS (2)
  1. RANITIDINE [Suspect]
     Indication: GASTRIC DISORDER
     Dosage: 50 MG Q8H INTRAVENOU
     Route: 042
     Dates: start: 20050519, end: 20050520
  2. RANITIDINE [Suspect]
     Indication: INTUBATION
     Dosage: 50 MG Q8H INTRAVENOU
     Route: 042
     Dates: start: 20050519, end: 20050520

REACTIONS (1)
  - PLATELET COUNT DECREASED [None]
